FAERS Safety Report 6975819-3 (Version None)
Quarter: 2010Q3

REPORT INFORMATION
  Report Type: 
  Country: None (occurrence: None)
  Receive Date: 20100910
  Receipt Date: 20100830
  Transmission Date: 20110219
  Serious: Yes (Hospitalization, Other)
  Sender: FDA-Public Use
  Company Number: US-ELI_LILLY_AND_COMPANY-US201006000301

PATIENT
  Sex: Male
  Weight: 170.52 kg

DRUGS (13)
  1. BYETTA [Suspect]
     Dosage: 5 UG, 2/D
     Dates: start: 20080208, end: 20080404
  2. BYETTA [Suspect]
     Dosage: 10 UG, 2/D
     Dates: start: 20080404
  3. FLOMAX [Concomitant]
     Dosage: 0.4 MG, DAILY (1/D)
     Route: 048
  4. TARKA [Concomitant]
     Dosage: 180 MG, DAILY (1/D)
     Route: 048
  5. LOVAZA [Concomitant]
  6. GLUMETZA [Concomitant]
     Dosage: 1000 MG, 2/D
     Route: 048
  7. DIOVAN [Concomitant]
     Dosage: 320 MG, DAILY (1/D)
     Route: 048
  8. NEXIUM [Concomitant]
     Dosage: 40 MG, DAILY (1/D)
     Route: 048
  9. HYDROCHLOROTHIAZIDE [Concomitant]
     Dosage: 25 MG, DAILY (1/D)
     Route: 048
  10. ACTOS [Concomitant]
     Dosage: 45 MG, DAILY (1/D)
     Route: 048
  11. ZYRTEC [Concomitant]
     Dosage: 10 MG, DAILY (1/D)
     Route: 048
  12. HUMULIN R [Concomitant]
     Dosage: UNK, AS NEEDED
  13. THYROID TAB [Concomitant]

REACTIONS (4)
  - CELLULITIS [None]
  - GROWTH HORMONE DEFICIENCY [None]
  - OFF LABEL USE [None]
  - RENAL FAILURE CHRONIC [None]
